FAERS Safety Report 15518306 (Version 1)
Quarter: 2018Q4

REPORT INFORMATION
  Report Type: Spontaneous
  Country: GB (occurrence: GB)
  Receive Date: 20181017
  Receipt Date: 20181017
  Transmission Date: 20190205
  Serious: Yes (Death, Hospitalization, Other)
  Sender: FDA-Public Use
  Company Number: GB-ASTRAZENECA-2013BM12060

PATIENT
  Age: 19859 Day
  Sex: Male
  Weight: 95 kg

DRUGS (12)
  1. ASPIRIN. [Concomitant]
     Active Substance: ASPIRIN
  2. COCODAMOL [Concomitant]
     Active Substance: ACETAMINOPHEN\CODEINE PHOSPHATE
  3. ENALAPRIL [Concomitant]
     Active Substance: ENALAPRIL
  4. PRAVASTATIN. [Concomitant]
     Active Substance: PRAVASTATIN
  5. GLICLAZIDE [Concomitant]
     Active Substance: GLICLAZIDE
  6. AVANDIA [Suspect]
     Active Substance: ROSIGLITAZONE MALEATE
     Indication: TYPE 2 DIABETES MELLITUS
     Route: 065
     Dates: start: 200708
  7. CIPROFIBRATE [Concomitant]
     Active Substance: CIPROFIBRATE
  8. EXENATIDE. [Suspect]
     Active Substance: EXENATIDE
     Indication: PRODUCT USED FOR UNKNOWN INDICATION
     Route: 065
  9. AVANDIA [Suspect]
     Active Substance: ROSIGLITAZONE MALEATE
     Indication: TYPE 2 DIABETES MELLITUS
     Route: 065
     Dates: start: 200804
  10. DOXAZOSIN [Suspect]
     Active Substance: DOXAZOSIN\DOXAZOSIN MESYLATE
     Indication: PRODUCT USED FOR UNKNOWN INDICATION
     Route: 065
  11. AMLODIPINE [Concomitant]
     Active Substance: AMLODIPINE BESYLATE
  12. METFORMIN [Concomitant]
     Active Substance: METFORMIN HYDROCHLORIDE
     Indication: TYPE 2 DIABETES MELLITUS
     Dates: start: 199609

REACTIONS (39)
  - Pneumonia [Fatal]
  - Pulmonary function test decreased [Unknown]
  - Macular oedema [Unknown]
  - Neovascularisation [Unknown]
  - Renal failure [Unknown]
  - Penile swelling [Unknown]
  - Left ventricular hypertrophy [Unknown]
  - Chronic obstructive pulmonary disease [Unknown]
  - Dyspnoea [Unknown]
  - Blood glucose fluctuation [Unknown]
  - Malaise [Unknown]
  - Microalbuminuria [Unknown]
  - Oedema peripheral [Unknown]
  - Pulmonary oedema [Unknown]
  - Cardiopulmonary failure [Fatal]
  - Systolic dysfunction [Unknown]
  - Micturition disorder [Unknown]
  - Cardiac disorder [Unknown]
  - Cough [Unknown]
  - Renal impairment [Unknown]
  - Dyslipidaemia [Unknown]
  - Nausea [Unknown]
  - Diabetic eye disease [Unknown]
  - Oedema [Unknown]
  - Scrotal swelling [Unknown]
  - Lower respiratory tract infection [Unknown]
  - Diabetic retinopathy [Unknown]
  - Nephrotic syndrome [Unknown]
  - Abdominal distension [Unknown]
  - Hypertension [Unknown]
  - Diabetic microangiopathy [Unknown]
  - Hypoxia [Unknown]
  - Vomiting [Unknown]
  - Cardiomegaly [Unknown]
  - Liver function test increased [Unknown]
  - Obstructive airways disorder [Unknown]
  - Cardiac failure congestive [Unknown]
  - Dizziness [Unknown]
  - Left ventricular dilatation [Unknown]

NARRATIVE: CASE EVENT DATE: 20070813
